FAERS Safety Report 9715205 (Version 3)
Quarter: 2014Q1

REPORT INFORMATION
  Report Type: Report from Study
  Country: JP (occurrence: JP)
  Receive Date: 20131126
  Receipt Date: 20140124
  Transmission Date: 20141002
  Serious: Yes (Death)
  Sender: FDA-Public Use
  Company Number: JP-TAKEDA-2013TJP003094

PATIENT
  Age: 84 Year
  Sex: Male
  Weight: 77 kg

DRUGS (30)
  1. ALOGLIPTIN [Suspect]
     Indication: TYPE 2 DIABETES MELLITUS
     Dosage: 25 MG, QD
     Route: 048
     Dates: start: 20100927, end: 20111211
  2. ALOGLIPTIN [Suspect]
     Dosage: 12.5 MG, QD
     Route: 048
     Dates: start: 20111212, end: 2012
  3. ECARD COMBINATION [Concomitant]
     Dosage: 1 DF, QD
     Route: 048
     Dates: start: 20100329, end: 20110915
  4. ECARD COMBINATION [Concomitant]
     Dosage: 1 DF, QD
     Route: 048
     Dates: start: 20110916, end: 20120112
  5. CARDENALIN [Concomitant]
     Dosage: 2 MG, 1 DAYS
     Route: 048
     Dates: start: 20100426, end: 20100704
  6. CARDENALIN [Concomitant]
     Dosage: 3 MG, 1 DAYS
     Route: 048
     Dates: start: 20100705, end: 20110201
  7. CARDENALIN [Concomitant]
     Dosage: 4 MG, 1 DAYS
     Route: 048
     Dates: start: 20110202, end: 20110502
  8. CARDENALIN [Concomitant]
     Dosage: 2 MG, 1 DAYS
     Route: 048
     Dates: start: 20110503, end: 20110515
  9. CALBLOCK [Concomitant]
     Dosage: 16 MG, 1 DAYS
     Route: 048
     Dates: start: 20100308, end: 20110807
  10. CALBLOCK [Concomitant]
     Dosage: 8 MG, 1 DAYS
     Route: 048
     Dates: start: 20110808, end: 20111008
  11. CALBLOCK [Concomitant]
     Dosage: 8 MG, 1 DAYS
     Route: 048
     Dates: start: 20111212, end: 20120112
  12. CALBLOCK [Concomitant]
     Dosage: 16 MG, 1 DAYS
     Route: 048
     Dates: start: 20120113, end: 20120205
  13. CALBLOCK [Concomitant]
     Dosage: 8 MG, 1 DAYS
     Route: 048
     Dates: start: 20120206, end: 20120304
  14. CALBLOCK [Concomitant]
     Dosage: 16 MG, 1 DAYS
     Route: 048
     Dates: start: 20120305, end: 20120318
  15. CALBLOCK [Concomitant]
     Dosage: 8 MG, 1 DAYS
     Route: 048
     Dates: start: 20120319, end: 20120326
  16. MAGMITT [Concomitant]
     Dosage: 330 MG, 1 DAY
     Route: 048
     Dates: start: 20100809, end: 20110930
  17. FLUITRAN [Concomitant]
     Dosage: 0.5 MG, 1DAY
     Route: 048
     Dates: start: 20110105, end: 20110202
  18. ACINON [Concomitant]
     Dosage: 150 MG, 1 DAY
     Route: 048
     Dates: start: 20110530, end: 20110724
  19. ACINON [Concomitant]
     Dosage: 150 MG, 1 DAYS
     Route: 048
     Dates: start: 20110916, end: 20110930
  20. TSUMURA HOCHUUEKKITOU [Concomitant]
     Dosage: 5 G, 1 DAY
     Route: 048
     Dates: start: 20110711, end: 20110801
  21. TSUMURA HOCHUUEKKITOU [Concomitant]
     Dosage: 2.5 G, 1 DAYS
     Route: 048
     Dates: start: 20110808, end: 20110821
  22. TSUMURA HOCHUUEKKITOU [Concomitant]
     Dosage: 2.5 G, 1 DAYS
     Route: 048
     Dates: start: 20120127, end: 20120610
  23. PL [Concomitant]
     Dosage: 3 G, 1 DAYS
     Route: 048
     Dates: start: 20110713, end: 20110718
  24. LANSOPRAZOLE [Concomitant]
     Dosage: 15 MG, 1 DAYS
     Route: 048
     Dates: start: 20110725, end: 20110904
  25. BIOFERMIN                          /01617201/ [Concomitant]
     Dosage: 3 G, 1 DAYS
     Route: 048
     Dates: start: 20110916, end: 20120625
  26. ALBUMIN TANNATE KENEI [Concomitant]
     Indication: DIARRHOEA
     Dosage: 3 G, 1 DAY
     Route: 048
     Dates: start: 20111118, end: 20120625
  27. PROMAC D [Concomitant]
     Dosage: 150 MG, 1 DAYS
     Route: 048
     Dates: start: 20111024, end: 20120304
  28. MUCOSOLATE L [Concomitant]
     Dosage: 45 MG, 1 DAYS
     Route: 048
     Dates: start: 20111118, end: 20111202
  29. KREMEZIN [Concomitant]
     Dosage: 4 G, 1 DAYS
     Route: 048
     Dates: start: 20120127, end: 20120625
  30. TSUMURA RIKKUNSHI-TO [Concomitant]
     Dosage: 5 G, 1 DAY
     Route: 048
     Dates: start: 20120127, end: 20120625

REACTIONS (2)
  - Renal neoplasm [Fatal]
  - Condition aggravated [Fatal]
